FAERS Safety Report 9982310 (Version 1)
Quarter: 2014Q1

REPORT INFORMATION
  Report Type: Report from Study
  Country: US (occurrence: US)
  Receive Date: 20140307
  Receipt Date: 20140307
  Transmission Date: 20141002
  Serious: No
  Sender: FDA-Public Use
  Company Number: US-ABBVIE-13P-163-1179530-00

PATIENT
  Age: 75 Year
  Sex: Male

DRUGS (4)
  1. HUMIRA [Suspect]
     Indication: PSORIATIC ARTHROPATHY
     Dates: start: 20130930
  2. PREDNISONE [Concomitant]
     Indication: PSORIATIC ARTHROPATHY
  3. METHOTREXATE [Concomitant]
     Indication: PSORIATIC ARTHROPATHY
  4. TRAMADOL [Concomitant]
     Indication: PAIN
     Dosage: EVERY MORNING

REACTIONS (1)
  - Tinnitus [Not Recovered/Not Resolved]
